FAERS Safety Report 24002040 (Version 3)
Quarter: 2024Q4

REPORT INFORMATION
  Report Type: Spontaneous
  Country: BE (occurrence: BE)
  Receive Date: 20240622
  Receipt Date: 20241017
  Transmission Date: 20250115
  Serious: Yes (Life-Threatening, Hospitalization, Other)
  Sender: AUROBINDO
  Company Number: BE-MLMSERVICE-20240419-PI014640-00336-2

PATIENT
  Age: 87 Year
  Sex: Male
  Weight: 95.4 kg

DRUGS (19)
  1. RAMIPRIL [Suspect]
     Active Substance: RAMIPRIL
     Indication: Heart failure with reduced ejection fraction
     Dosage: 5 MG ? PER DAY PER OS
     Route: 048
  2. RAMIPRIL [Suspect]
     Active Substance: RAMIPRIL
     Indication: Ischaemic cardiomyopathy
  3. RAMIPRIL [Suspect]
     Active Substance: RAMIPRIL
     Indication: Atrial fibrillation
  4. RAMIPRIL [Suspect]
     Active Substance: RAMIPRIL
     Indication: Hypertension
  5. RAMIPRIL [Suspect]
     Active Substance: RAMIPRIL
     Indication: Cardiac failure
  6. ACLASTA [Suspect]
     Active Substance: ZOLEDRONIC ACID
     Indication: Lumbar vertebral fracture
     Dosage: 5 MILLIGRAM, ANNUAL INTRAVENOUS ADMINISTRATION/ADMINISTRATION TIME WAS 15 MINUTES
     Route: 042
  7. ACLASTA [Suspect]
     Active Substance: ZOLEDRONIC ACID
     Indication: Osteoporosis
  8. BUMETANIDE [Suspect]
     Active Substance: BUMETANIDE
     Indication: Diuretic therapy
     Dosage: 1 MG PER DAY PER OS
     Route: 048
  9. BUMETANIDE [Suspect]
     Active Substance: BUMETANIDE
     Indication: Ischaemic cardiomyopathy
  10. BUMETANIDE [Suspect]
     Active Substance: BUMETANIDE
     Indication: Heart failure with reduced ejection fraction
  11. BUMETANIDE [Suspect]
     Active Substance: BUMETANIDE
     Indication: Renal impairment
  12. BUMETANIDE [Suspect]
     Active Substance: BUMETANIDE
     Indication: Cardiac failure
  13. ATORVASTATIN [Concomitant]
     Active Substance: ATORVASTATIN
     Indication: Product used for unknown indication
     Dosage: UNK
     Route: 065
  14. BISOPROLOL [Concomitant]
     Active Substance: BISOPROLOL\BISOPROLOL FUMARATE
     Indication: Product used for unknown indication
     Dosage: UNK
     Route: 065
  15. CALCIUM CARBONATE [Concomitant]
     Active Substance: CALCIUM CARBONATE
     Indication: Product used for unknown indication
     Dosage: 1000 MILLIGRAM
     Route: 065
  16. CHOLECALCIFEROL [Concomitant]
     Active Substance: CHOLECALCIFEROL
     Indication: Product used for unknown indication
     Dosage: 800 INTERNATIONAL UNIT
     Route: 065
  17. EDOXABAN [Concomitant]
     Active Substance: EDOXABAN
     Indication: Product used for unknown indication
     Dosage: UNK
     Route: 065
  18. FENOTEROL HYDROBROMIDE [Concomitant]
     Active Substance: FENOTEROL HYDROBROMIDE
     Indication: Respiratory symptom
     Dosage: UNK
     Route: 065
  19. METHYLPREDNISOLONE [Concomitant]
     Active Substance: METHYLPREDNISOLONE
     Indication: Respiratory symptom
     Dosage: UNK
     Route: 065

REACTIONS (10)
  - Acute kidney injury [Recovering/Resolving]
  - Renal tubular necrosis [Recovering/Resolving]
  - Uraemic encephalopathy [Recovering/Resolving]
  - Fall [Unknown]
  - Haemoptysis [Unknown]
  - Hyperkalaemia [Unknown]
  - Hyperphosphataemia [Unknown]
  - Hyperuricaemia [Unknown]
  - Renal tubular necrosis [Unknown]
  - Asthenia [Unknown]
